FAERS Safety Report 5316007-6 (Version None)
Quarter: 2007Q2

REPORT INFORMATION
  Report Type: 
  Country: None (occurrence: None)
  Receive Date: 20070503
  Receipt Date: 20070425
  Transmission Date: 20071010
  Serious: Yes (Life-Threatening, Hospitalization)
  Sender: FDA-Public Use
  Company Number: JP-SANOFI-SYNTHELABO-D01200701067

PATIENT
  Sex: Male
  Weight: 77 kg

DRUGS (11)
  1. KAKKONTO [Concomitant]
     Indication: NASOPHARYNGITIS
     Dosage: 7.5 G
     Route: 048
     Dates: start: 20061230
  2. REBAMIPIDE [Concomitant]
     Indication: GASTRITIS PROPHYLAXIS
     Dosage: 300 MG
     Route: 048
     Dates: start: 20060801
  3. LIMAPROST ALFADEX [Concomitant]
     Indication: SCIATICA
     Dosage: 0.5 MG
     Route: 048
     Dates: start: 20060801
  4. LOXOPROFEN SODIUM [Concomitant]
     Indication: SCIATICA
     Dosage: 180 MG
     Route: 048
     Dates: start: 20060801
  5. MAGNESIUM OXIDE [Concomitant]
     Indication: CONSTIPATION
     Dosage: 330 MG
     Route: 048
     Dates: start: 20060801
  6. BROTIZOLAM [Concomitant]
     Indication: INSOMNIA
     Dosage: 0.25 MG
     Route: 048
     Dates: start: 20040101
  7. GLIMEPIRIDE [Concomitant]
     Indication: DIABETES MELLITUS
     Dosage: 0.5 MG
     Route: 048
     Dates: start: 20030101
  8. ALFUZOSIN [Suspect]
     Indication: BENIGN PROSTATIC HYPERPLASIA
     Route: 048
     Dates: start: 20061219, end: 20070212
  9. BIFONAZOLE [Concomitant]
     Indication: TINEA CRURIS
     Dosage: ADEQUATE AMOUNT
     Route: 062
     Dates: start: 20060727
  10. CANDESARTAN CILEXETIL [Concomitant]
     Indication: HYPERTENSION
     Dosage: UNK
     Route: 048
     Dates: start: 20060110, end: 20060909
  11. CANDESARTAN CILEXETIL [Concomitant]
     Dosage: 4 MG
     Route: 048
     Dates: start: 20070202

REACTIONS (1)
  - CEREBRAL HAEMORRHAGE [None]
